FAERS Safety Report 5780260-5 (Version None)
Quarter: 2008Q2

REPORT INFORMATION
  Report Type: 
  Country: None (occurrence: None)
  Receive Date: 20080620
  Receipt Date: 20080612
  Transmission Date: 20081010
  Serious: Yes (Other)
  Sender: FDA-Public Use
  Company Number: PHHY2008BR10569

PATIENT
  Sex: Female

DRUGS (1)
  1. EXELON [Suspect]
     Dosage: 9 MG/5 CM2, UNK
     Route: 062

REACTIONS (2)
  - SKIN HAEMORRHAGE [None]
  - SKIN IRRITATION [None]
